FAERS Safety Report 10094180 (Version 17)
Quarter: 2023Q1

REPORT INFORMATION
  Report Type: Other
  Country: CA (occurrence: None)
  Receive Date: 20140422
  Receipt Date: 20230117
  Transmission Date: 20230417
  Serious: Yes (Life-Threatening, Hospitalization, Other)
  Sender: FDA-Public Use
  Company Number: CA-ROCHE-1198539

PATIENT
  Age: 28 Year
  Sex: Female
  Weight: 54.4 kg

DRUGS (18)
  1. ACTEMRA [Suspect]
     Active Substance: TOCILIZUMAB
     Indication: Juvenile idiopathic arthritis
     Dosage: 8 MG/KG
     Route: 042
     Dates: start: 20110112
  2. ACTEMRA [Suspect]
     Active Substance: TOCILIZUMAB
     Indication: Rheumatoid arthritis
     Route: 042
     Dates: start: 20110602
  3. ACTEMRA [Suspect]
     Active Substance: TOCILIZUMAB
     Route: 042
     Dates: start: 20110630
  4. ACTEMRA [Suspect]
     Active Substance: TOCILIZUMAB
     Route: 042
     Dates: start: 20150305
  5. ACTEMRA [Suspect]
     Active Substance: TOCILIZUMAB
     Route: 042
     Dates: start: 20180307
  6. RITUXAN [Suspect]
     Active Substance: RITUXIMAB
     Indication: Juvenile idiopathic arthritis
     Dosage: MOST RECENT DOSE OF INFUSION WAS RECEIVED ON 02/MAY/2013
     Route: 042
     Dates: start: 20130418, end: 20130502
  7. METHOTREXATE [Suspect]
     Active Substance: METHOTREXATE
     Indication: Product used for unknown indication
     Route: 065
  8. ACTEMRA [Suspect]
     Active Substance: TOCILIZUMAB
     Indication: Rheumatoid arthritis
     Route: 058
     Dates: start: 20220322
  9. NAPROXEN [Concomitant]
     Active Substance: NAPROXEN
  10. TYLENOL [Concomitant]
     Active Substance: ACETAMINOPHEN
  11. FOSAMAX [Concomitant]
     Active Substance: ALENDRONATE SODIUM
  12. ANAKINRA [Concomitant]
     Active Substance: ANAKINRA
  13. OMEPRAZOLE [Concomitant]
     Active Substance: OMEPRAZOLE
  14. VALACYCLOVIR [Concomitant]
     Active Substance: VALACYCLOVIR HYDROCHLORIDE
     Dosage: 2 WEEK COURSE
     Dates: start: 20141013
  15. PERCOCET [Concomitant]
     Active Substance: ACETAMINOPHEN\OXYCODONE HYDROCHLORIDE
  16. CYCLOSPORINE [Concomitant]
     Active Substance: CYCLOSPORINE
  17. FOLIC ACID [Concomitant]
     Active Substance: FOLIC ACID
  18. PREDNISONE [Concomitant]
     Active Substance: PREDNISONE

REACTIONS (19)
  - Organ failure [Unknown]
  - Arthropathy [Recovered/Resolved]
  - Knee arthroplasty [Unknown]
  - Arthritis infective [Not Recovered/Not Resolved]
  - Hypotension [Unknown]
  - Sepsis syndrome [Recovering/Resolving]
  - Haemophagocytic lymphohistiocytosis [Recovering/Resolving]
  - Heart rate increased [Unknown]
  - Drug ineffective [Unknown]
  - Herpes zoster [Not Recovered/Not Resolved]
  - Nasopharyngitis [Unknown]
  - Weight increased [Not Recovered/Not Resolved]
  - Drug ineffective [Unknown]
  - Weight decreased [Not Recovered/Not Resolved]
  - Fall [Unknown]
  - Infection [Unknown]
  - Musculoskeletal disorder [Unknown]
  - COVID-19 [Unknown]
  - Drug hypersensitivity [Unknown]

NARRATIVE: CASE EVENT DATE: 20130222
